FAERS Safety Report 11977161 (Version 2)
Quarter: 2016Q1

REPORT INFORMATION
  Report Type: Report from Study
  Country: US (occurrence: US)
  Receive Date: 20160129
  Receipt Date: 20160205
  Transmission Date: 20160526
  Serious: Yes (Other)
  Sender: FDA-Public Use
  Company Number: US-BAXALTA-2016BLT000412

PATIENT
  Age: 40 Year
  Sex: Female
  Weight: 102 kg

DRUGS (6)
  1. GAMMAGARD S/D [Suspect]
     Active Substance: HUMAN IMMUNOGLOBULIN G
     Indication: IMMUNODEFICIENCY COMMON VARIABLE
  2. BENADRYL [Concomitant]
     Active Substance: DIPHENHYDRAMINE HYDROCHLORIDE
     Indication: PREMEDICATION
     Dosage: 25 MG, BEFORE GGSD INFUSION
     Route: 048
     Dates: start: 20160113
  3. ZANTAC [Concomitant]
     Active Substance: RANITIDINE HYDROCHLORIDE
     Indication: PREMEDICATION
     Dosage: 150 MG, BEFORE GGSD INFUSION
     Route: 048
     Dates: start: 20160113
  4. TYLENOL [Concomitant]
     Active Substance: ACETAMINOPHEN
     Indication: PREMEDICATION
     Dosage: 650 MG, BEFORE GGSD INFUSION
     Route: 048
     Dates: start: 20160113
  5. GAMMAGARD S/D [Suspect]
     Active Substance: HUMAN IMMUNOGLOBULIN G
     Indication: PRIMARY IMMUNODEFICIENCY SYNDROME
     Dosage: 5%, 42.4 G
     Route: 042
     Dates: start: 20160113
  6. SALINE ORAL OTC [Concomitant]
     Active Substance: SODIUM CHLORIDE
     Indication: PREMEDICATION
     Dosage: 500 ML, BEFORE GGSD INFUSION
     Route: 042
     Dates: start: 20160113

REACTIONS (5)
  - Palpitations [Recovered/Resolved]
  - Nausea [Recovered/Resolved]
  - Pharyngeal paraesthesia [Recovered/Resolved]
  - Dizziness [Recovered/Resolved]
  - Pyrexia [Recovered/Resolved]

NARRATIVE: CASE EVENT DATE: 20160113
